FAERS Safety Report 21033393 (Version 1)
Quarter: 2022Q3

REPORT INFORMATION
  Report Type: Spontaneous
  Country: CN (occurrence: CN)
  Receive Date: 20220701
  Receipt Date: 20220701
  Transmission Date: 20221026
  Serious: Yes (Hospitalization, Other)
  Sender: FDA-Public Use
  Company Number: CN-GLAXOSMITHKLINE-CNCH2022GSK022805

PATIENT

DRUGS (1)
  1. ORLISTAT [Suspect]
     Active Substance: ORLISTAT
     Indication: Weight decreased
     Dosage: UNK, QD

REACTIONS (3)
  - Nephropathy toxic [Recovered/Resolved]
  - Nephrotic syndrome [Recovered/Resolved]
  - Hyperoxaluria [Recovered/Resolved]
